FAERS Safety Report 6916399-8 (Version None)
Quarter: 2010Q3

REPORT INFORMATION
  Report Type: 
  Country: None (occurrence: None)
  Receive Date: 20100810
  Receipt Date: 20080619
  Transmission Date: 20110219
  Serious: No
  Sender: FDA-Public Use
  Company Number: US-PFIZER INC-2008037511

PATIENT
  Sex: Male

DRUGS (4)
  1. GLUCOTROL [Suspect]
  2. METFORMIN HCL [Suspect]
  3. AVANDIA [Suspect]
  4. ACTOS [Suspect]

REACTIONS (4)
  - CHEST DISCOMFORT [None]
  - MUSCULOSKELETAL DISCOMFORT [None]
  - NAUSEA [None]
  - PAIN [None]
